FAERS Safety Report 23277281 (Version 1)
Quarter: 2023Q4

REPORT INFORMATION
  Report Type: Spontaneous
  Country: CN (occurrence: CN)
  Receive Date: 20231208
  Receipt Date: 20231208
  Transmission Date: 20240110
  Serious: Yes (Other)
  Sender: FDA-Public Use
  Company Number: CN-JNJFOC-20231201397

PATIENT
  Age: 66 Year
  Sex: Female
  Weight: 42.3 kg

DRUGS (2)
  1. DARZALEX [Suspect]
     Active Substance: DARATUMUMAB
     Indication: Plasma cell myeloma
     Dosage: DOSE: 600 MG
     Route: 041
     Dates: start: 20231111, end: 20231111
  2. DARZALEX [Suspect]
     Active Substance: DARATUMUMAB
     Dosage: DOSE: 600 MG?CONTINUED WITH LOW FLOW RATE INTRAVENOUS DRIP OF DARATUMUMAB
     Route: 041
     Dates: start: 20231111

REACTIONS (6)
  - Arrhythmia [Recovering/Resolving]
  - Chest discomfort [Recovering/Resolving]
  - Dyspnoea [Recovering/Resolving]
  - Cold sweat [Recovering/Resolving]
  - Pain [Recovering/Resolving]
  - Breath sounds abnormal [Recovering/Resolving]

NARRATIVE: CASE EVENT DATE: 20231111
